FAERS Safety Report 13542001 (Version 3)
Quarter: 2017Q4

REPORT INFORMATION
  Report Type: Spontaneous
  Country: US (occurrence: US)
  Receive Date: 20170512
  Receipt Date: 20171205
  Transmission Date: 20180320
  Serious: Yes (Hospitalization, Other)
  Sender: FDA-Public Use
  Company Number: US-009507513-1705USA005209

PATIENT
  Age: 83 Year
  Sex: Male
  Weight: 131.1 kg

DRUGS (13)
  1. COZAAR [Concomitant]
     Active Substance: LOSARTAN POTASSIUM
     Route: 048
  2. COREG [Concomitant]
     Active Substance: CARVEDILOL
  3. PRAVACHOL [Concomitant]
     Active Substance: PRAVASTATIN SODIUM
  4. ULTRAM [Concomitant]
     Active Substance: TRAMADOL HYDROCHLORIDE
  5. ALPHAGAN P [Concomitant]
     Active Substance: BRIMONIDINE TARTRATE
  6. HYDROSIL [Concomitant]
  7. IMDUR [Concomitant]
     Active Substance: ISOSORBIDE MONONITRATE
  8. LASIX [Concomitant]
     Active Substance: FUROSEMIDE
  9. LUMIGAN [Concomitant]
     Active Substance: BIMATOPROST
  10. JANUVIA [Suspect]
     Active Substance: SITAGLIPTIN PHOSPHATE
     Indication: DIABETES MELLITUS
     Dosage: 10 MG, BID
     Route: 048
  11. ACTOS [Suspect]
     Active Substance: PIOGLITAZONE HYDROCHLORIDE
     Indication: DIABETES MELLITUS
     Dosage: 45 MG, QD
     Route: 048
  12. GLUCOTROL XL [Suspect]
     Active Substance: GLIPIZIDE
     Indication: DIABETES MELLITUS
     Dosage: DATES OF USE CHRONIC
     Route: 048
  13. DORZOLAMIDE HYDROCHLORIDE (+) TIMOLOL MALEATE [Concomitant]
     Active Substance: DORZOLAMIDE HYDROCHLORIDE\TIMOLOL MALEATE

REACTIONS (2)
  - Renal failure [Not Recovered/Not Resolved]
  - Hypoglycaemia [Recovered/Resolved]

NARRATIVE: CASE EVENT DATE: 20150909
